FAERS Safety Report 8076789-X (Version None)
Quarter: 2011Q4

REPORT INFORMATION
  Report Type: 
  Country: None (occurrence: None)
  Receive Date: 20111221
  Receipt Date: 20110809
  Transmission Date: 20120403
  Serious: Yes (Hospitalization)
  Sender: FDA-Public Use
  Company Number: PHHY2009US66520

PATIENT
  Sex: Female

DRUGS (2)
  1. EXJADE [Suspect]
     Dosage: 1500 MG, QD, ORAL ; EXJADE REGIMEN # 2 500 MG, QD, ORAL
     Route: 048
     Dates: start: 20090311
  2. EXJADE [Suspect]
     Dosage: 500 MG, QD, ORAL
     Route: 048

REACTIONS (2)
  - INFECTION [None]
  - SICKLE CELL ANAEMIA WITH CRISIS [None]
